FAERS Safety Report 5387771-5 (Version None)
Quarter: 2007Q3

REPORT INFORMATION
  Report Type: 
  Country: None (occurrence: None)
  Receive Date: 20070716
  Receipt Date: 20070704
  Transmission Date: 20080115
  Serious: Yes (Other)
  Sender: FDA-Public Use
  Company Number: GB-SANOFI-SYNTHELABO-A01200707302

PATIENT
  Age: 76 Year
  Sex: Male
  Weight: 87 kg

DRUGS (5)
  1. GRANISETRON [Concomitant]
     Indication: COLON CANCER METASTATIC
     Dosage: 1 MG
     Route: 048
     Dates: start: 20070409
  2. CAPECITABINE [Concomitant]
     Indication: COLON CANCER METASTATIC
     Dosage: 2600 MG
     Route: 048
     Dates: start: 20070409
  3. ASPIRIN [Concomitant]
     Dosage: 75 MG
     Route: 048
  4. OXALIPLATIN [Suspect]
     Indication: COLORECTAL CANCER METASTATIC
     Route: 041
     Dates: start: 20070409, end: 20070409
  5. DEXAMETHASONE 0.5MG TAB [Concomitant]
     Indication: COLON CANCER METASTATIC
     Dosage: 10 MG
     Route: 048
     Dates: start: 20070409

REACTIONS (1)
  - BLINDNESS TRANSIENT [None]
